FAERS Safety Report 8035492-2 (Version None)
Quarter: 2012Q1

REPORT INFORMATION
  Report Type: 
  Country: None (occurrence: None)
  Receive Date: 20120110
  Receipt Date: 20120110
  Transmission Date: 20120608
  Serious: Yes (Hospitalization)
  Sender: FDA-Public Use
  Company Number: None

PATIENT
  Age: 46 Year
  Sex: Female

DRUGS (1)
  1. METHOTREXATE [Suspect]
     Dates: start: 20101029, end: 20101213

REACTIONS (3)
  - HYPOAESTHESIA [None]
  - TOXICITY TO VARIOUS AGENTS [None]
  - PARAESTHESIA [None]
